FAERS Safety Report 23581883 (Version 1)
Quarter: 2024Q1

REPORT INFORMATION
  Report Type: Spontaneous
  Country: US (occurrence: US)
  Receive Date: 20240229
  Receipt Date: 20240229
  Transmission Date: 20240410
  Serious: No
  Sender: FDA-Public Use
  Company Number: US-BAUSCH-BL-2024-003159

PATIENT
  Sex: Male

DRUGS (1)
  1. ATIVAN [Suspect]
     Active Substance: LORAZEPAM
     Indication: Anxiety
     Route: 065
     Dates: start: 1998

REACTIONS (5)
  - Anxiety [Unknown]
  - Product packaging issue [Unknown]
  - Product quality issue [Unknown]
  - Poor quality product administered [Unknown]
  - Product physical issue [Unknown]
